FAERS Safety Report 7531918-9 (Version None)
Quarter: 2011Q2

REPORT INFORMATION
  Report Type: 
  Country: None (occurrence: None)
  Receive Date: 20110607
  Receipt Date: 20110607
  Transmission Date: 20111010
  Serious: Yes (Death, Hospitalization)
  Sender: FDA-Public Use
  Company Number: None

PATIENT
  Age: 66 Year
  Sex: Male

DRUGS (1)
  1. CLOPIDOGREL [Suspect]
     Indication: ANAPHYLACTIC REACTION
     Dosage: 75 MG EVERY DAY PO
     Route: 048
     Dates: start: 20110512, end: 20110524

REACTIONS (4)
  - ANAPHYLACTIC REACTION [None]
  - PRURITUS [None]
  - URTICARIA [None]
  - PHARYNGEAL OEDEMA [None]
